FAERS Safety Report 20347311 (Version 5)
Quarter: 2022Q4

REPORT INFORMATION
  Report Type: Spontaneous
  Country: JP (occurrence: JP)
  Receive Date: 20220118
  Receipt Date: 20221229
  Transmission Date: 20230113
  Serious: Yes (Hospitalization, Other)
  Sender: FDA-Public Use
  Company Number: JP-ONO-2021JP027398

PATIENT
  Age: 65 Year
  Sex: Male
  Weight: 43.9 kg

DRUGS (13)
  1. SITAGLIPTIN [Suspect]
     Active Substance: SITAGLIPTIN
     Indication: Steroid diabetes
     Dosage: UNK
     Route: 048
     Dates: start: 20211111
  2. OPDIVO [Suspect]
     Active Substance: NIVOLUMAB
     Indication: Non-small cell lung cancer recurrent
     Dosage: 360 MG
     Route: 041
     Dates: start: 20211006, end: 20211006
  3. YERVOY [Suspect]
     Active Substance: IPILIMUMAB
     Indication: Non-small cell lung cancer recurrent
     Dosage: 43.9 MG
     Route: 041
     Dates: start: 20211006, end: 20211006
  4. SOLU-MEDROL [Suspect]
     Active Substance: METHYLPREDNISOLONE SODIUM SUCCINATE
     Indication: Guillain-Barre syndrome
     Dosage: (TAPERED DOWN)
     Route: 065
     Dates: start: 20211029, end: 20211108
  5. SOLU-MEDROL [Suspect]
     Active Substance: METHYLPREDNISOLONE SODIUM SUCCINATE
     Dosage: 125 MG
     Route: 065
     Dates: start: 20211116
  6. SOLU-MEDROL [Suspect]
     Active Substance: METHYLPREDNISOLONE SODIUM SUCCINATE
     Dosage: 100 MG
     Route: 065
     Dates: start: 20211123, end: 20211127
  7. PREDONINE [Suspect]
     Active Substance: PREDNISOLONE
     Indication: Guillain-Barre syndrome
     Dosage: 60 MG
     Route: 048
     Dates: start: 20211109, end: 20211116
  8. PREDONINE [Suspect]
     Active Substance: PREDNISOLONE
     Dosage: 50 MG
     Route: 048
  9. PREDONINE [Suspect]
     Active Substance: PREDNISOLONE
     Dosage: 80 MG
     Route: 048
     Dates: start: 20211128
  10. PREDONINE [Suspect]
     Active Substance: PREDNISOLONE
     Dosage: 35 MG
     Route: 048
  11. PACLITAXEL [Suspect]
     Active Substance: PACLITAXEL
     Indication: Non-small cell lung cancer recurrent
     Dosage: 292 MG
     Route: 065
     Dates: start: 20211006, end: 20211006
  12. CARBOPLATIN [Concomitant]
     Active Substance: CARBOPLATIN
     Indication: Non-small cell lung cancer recurrent
     Dosage: 412 MG
     Route: 065
     Dates: start: 20211006, end: 20211006
  13. RABEPRAZOLE SODIUM [Concomitant]
     Active Substance: RABEPRAZOLE SODIUM
     Indication: Prophylaxis against gastrointestinal ulcer
     Dosage: 10 MG, EVERYDAY
     Route: 048
     Dates: start: 20211010

REACTIONS (8)
  - Hyperkalaemia [Recovering/Resolving]
  - Guillain-Barre syndrome [Recovering/Resolving]
  - Hypothyroidism [Unknown]
  - Steroid diabetes [Unknown]
  - Insomnia [Unknown]
  - Constipation [Unknown]
  - Diarrhoea [Unknown]
  - Off label use [Unknown]

NARRATIVE: CASE EVENT DATE: 20211013
